FAERS Safety Report 10538522 (Version 2)
Quarter: 2014Q4

REPORT INFORMATION
  Report Type: Spontaneous
  Country: US (occurrence: US)
  Receive Date: 20141023
  Receipt Date: 20141023
  Transmission Date: 20150529
  Serious: Yes (Hospitalization, Other)
  Sender: FDA-Public Use
  Company Number: US-GLAXOSMITHKLINE-A0873102A

PATIENT
  Sex: Female

DRUGS (2)
  1. ROSIGLITAZONE [Suspect]
     Active Substance: ROSIGLITAZONE
     Indication: DIABETES MELLITUS
     Dosage: 8 MG, QD
     Route: 048
     Dates: start: 20030113, end: 20030731
  2. AVANDIA [Suspect]
     Active Substance: ROSIGLITAZONE MALEATE
     Indication: DIABETES MELLITUS
     Dosage: 4 MG, BID
     Route: 048
     Dates: start: 200307, end: 200512

REACTIONS (4)
  - Arrhythmia [Unknown]
  - Acute myocardial infarction [Not Recovered/Not Resolved]
  - Sinus node dysfunction [Unknown]
  - Coronary artery disease [Unknown]
